FAERS Safety Report 5130557-7 (Version None)
Quarter: 2006Q4

REPORT INFORMATION
  Report Type: 
  Country: None (occurrence: None)
  Receive Date: 20061017
  Receipt Date: 20061017
  Transmission Date: 20070319
  Serious: Yes (Life-Threatening)
  Sender: FDA-Public Use
  Company Number: None

PATIENT
  Age: 45 Year
  Sex: Male
  Weight: 95.2554 kg

DRUGS (2)
  1. XANAX [Suspect]
     Indication: ANXIETY
     Dosage: 1 1/2 DAILY PO
     Route: 048
     Dates: start: 20010407, end: 20060710
  2. SOMA [Suspect]
     Indication: MYALGIA
     Dosage: DAILY PO
     Route: 048
     Dates: start: 20011209, end: 20060629

REACTIONS (1)
  - DRUG DEPENDENCE [None]
